FAERS Safety Report 15608540 (Version 2)
Quarter: 2019Q3

REPORT INFORMATION
  Report Type: Report from Study
  Country: US (occurrence: US)
  Receive Date: 20181112
  Receipt Date: 20190912
  Transmission Date: 20191004
  Serious: Yes (Other)
  Sender: FDA-Public Use
  Company Number: US-SHIRE-US201843774

PATIENT
  Age: 26 Year
  Sex: Female

DRUGS (1)
  1. HUMAN NORMAL IMMUNOGLOBULIN; LIQUID [Suspect]
     Active Substance: HUMAN IMMUNOGLOBULIN G
     Indication: IMMUNODEFICIENCY COMMON VARIABLE
     Dosage: 15 G, WEEKLY
     Route: 058
     Dates: end: 201811

REACTIONS (5)
  - Sinusitis [Unknown]
  - Bronchitis [Unknown]
  - Asthma [Unknown]
  - Inability to afford medication [Unknown]
  - Labyrinthitis [Unknown]

NARRATIVE: CASE EVENT DATE: 201811
